FAERS Safety Report 11209476 (Version 1)
Quarter: 2015Q2

REPORT INFORMATION
  Report Type: Spontaneous
  Country: US (occurrence: US)
  Receive Date: 20150622
  Receipt Date: 20150622
  Transmission Date: 20150821
  Serious: Yes (Other)
  Sender: FDA-Public Use
  Company Number: US-MPIJNJ-2012-01045

PATIENT
  Age: 64 Year
  Sex: Female

DRUGS (1)
  1. VELCADE [Suspect]
     Active Substance: BORTEZOMIB
     Indication: PLASMA CELL MYELOMA
     Dosage: 2.12 MG, CYCLIC
     Dates: start: 20120127, end: 201202

REACTIONS (4)
  - Injection site reaction [Recovered/Resolved]
  - Injection site reaction [Recovered/Resolved]
  - Injection site irritation [Recovered/Resolved]
  - Injection site erythema [Recovered/Resolved]

NARRATIVE: CASE EVENT DATE: 20120130
